FAERS Safety Report 11360166 (Version 4)
Quarter: 2016Q1

REPORT INFORMATION
  Report Type: Report from Study
  Country: MX (occurrence: MX)
  Receive Date: 20150810
  Receipt Date: 20160129
  Transmission Date: 20160525
  Serious: Yes (Hospitalization)
  Sender: FDA-Public Use
  Company Number: PHHY2015MX094255

PATIENT
  Age: 81 Year
  Sex: Female

DRUGS (6)
  1. EUTEBROL [Concomitant]
     Indication: HYDROCEPHALUS
     Dosage: 10 MG, UNK
     Route: 065
  2. NIMODIPINE. [Concomitant]
     Active Substance: NIMODIPINE
     Indication: BLOOD PRESSURE ABNORMAL
     Dosage: 1 DF (TABLET), UNK
     Route: 065
  3. EXELON PATCH [Suspect]
     Active Substance: RIVASTIGMINE
     Indication: CEREBRAL INFARCTION
     Dosage: 4.6 MG, QD, PATCH 5 CM2
     Route: 062
     Dates: start: 201407
  4. EXELON PATCH [Suspect]
     Active Substance: RIVASTIGMINE
     Dosage: 9 MG PATCH OF 5 CM2 SPLIT IN 2, QD
     Route: 062
  5. PHENYTOIN. [Concomitant]
     Active Substance: PHENYTOIN
     Indication: PRODUCT USED FOR UNKNOWN INDICATION
     Dosage: UNK
     Route: 065
  6. OMEPRAZOLE. [Concomitant]
     Active Substance: OMEPRAZOLE
     Indication: DYSPEPSIA
     Dosage: 20 MG, UNK
     Route: 065

REACTIONS (4)
  - Cerebral infarction [Recovering/Resolving]
  - Product use issue [Unknown]
  - Drug prescribing error [Unknown]
  - Wrong technique in product usage process [Unknown]

NARRATIVE: CASE EVENT DATE: 201407
